FAERS Safety Report 9461754 (Version 2)
Quarter: 2013Q4

REPORT INFORMATION
  Report Type: Spontaneous
  Country: JP (occurrence: JP)
  Receive Date: 20130816
  Receipt Date: 20131010
  Transmission Date: 20140711
  Serious: Yes (Other)
  Sender: FDA-Public Use
  Company Number: JP-009507513-1308JPN003972

PATIENT
  Age: 56 Year
  Sex: Female

DRUGS (3)
  1. PEGINTRON [Suspect]
     Indication: HEPATITIS
     Dosage: 120 MICROGRAM PER KILOGRAM, QW
     Route: 058
     Dates: start: 20130416, end: 201307
  2. REBETOL [Suspect]
     Indication: HEPATITIS
     Dosage: 200MG IN MORNING AND 400MG IN EVENING
     Route: 048
     Dates: start: 20130416, end: 201307
  3. TELAVIC [Suspect]
     Indication: HEPATITIS
     Dosage: 500 MG, TID,FORMULATION: POR
     Route: 048
     Dates: start: 20130416, end: 201307

REACTIONS (1)
  - Lymphoma [Not Recovered/Not Resolved]
